FAERS Safety Report 19190300 (Version 3)
Quarter: 2021Q4

REPORT INFORMATION
  Report Type: Report from Study
  Country: BE (occurrence: BE)
  Receive Date: 20210428
  Receipt Date: 20211003
  Transmission Date: 20220303
  Serious: Yes (Hospitalization, Other)
  Sender: FDA-Public Use
  Company Number: NVSC2021BE090541

PATIENT
  Sex: Female
  Weight: 64 kg

DRUGS (5)
  1. TRAMETINIB [Suspect]
     Active Substance: TRAMETINIB
     Indication: Thyroid cancer metastatic
     Dosage: 2 MG, QD
     Route: 048
     Dates: start: 20210324, end: 20210402
  2. DABRAFENIB [Suspect]
     Active Substance: DABRAFENIB
     Indication: Thyroid cancer metastatic
     Dosage: 150 MG, BID
     Route: 048
     Dates: start: 20210324, end: 20210402
  3. PANTOPRAZOLE [Concomitant]
     Active Substance: PANTOPRAZOLE
     Indication: Dyspepsia
     Dosage: 40 MG, QD
     Route: 065
     Dates: end: 20210403
  4. HYDROCHLOROTHIAZIDE\NEBIVOLOL HYDROCHLORIDE [Concomitant]
     Active Substance: HYDROCHLOROTHIAZIDE\NEBIVOLOL HYDROCHLORIDE
     Indication: Hypertension
     Dosage: 5/1.25 MG, QD
     Route: 065
     Dates: end: 20210403
  5. LEVOTHYROXINE SODIUM [Concomitant]
     Active Substance: LEVOTHYROXINE SODIUM
     Indication: Thyroidectomy
     Dosage: 100 UG, QD
     Route: 065
     Dates: start: 20081029

REACTIONS (5)
  - Pancreatitis acute [Recovered/Resolved]
  - Lipase increased [Unknown]
  - Vomiting [Unknown]
  - Abdominal pain upper [Unknown]
  - Nausea [Unknown]

NARRATIVE: CASE EVENT DATE: 20210403
